FAERS Safety Report 8586269 (Version 2)
Quarter: 2013Q1

REPORT INFORMATION
  Report Type: Report from Study
  Country: BR (occurrence: BR)
  Receive Date: 20120530
  Receipt Date: 20130128
  Transmission Date: 20140127
  Serious: Yes (Hospitalization, Other)
  Sender: FDA-Public Use
  Company Number: BR-ROCHE-743999

PATIENT
  Sex: Female
  Weight: 96 kg

DRUGS (13)
  1. MABTHERA [Suspect]
     Indication: RHEUMATOID ARTHRITIS
     Dosage: OTHER INDICATION: VASCULITIS, FORM: INFUSION
     Route: 042
     Dates: start: 20100415, end: 201011
  2. MABTHERA [Suspect]
     Dosage: SECOND DOSE FORM: INFUSION
     Route: 042
  3. MABTHERA [Suspect]
     Dosage: THIRD DOSE FORM: INFUSION
     Route: 042
  4. MABTHERA [Suspect]
     Dosage: FOURTH DOSE FORM: INFUSION
     Route: 042
  5. MABTHERA [Suspect]
     Route: 042
  6. LOSARTAN [Concomitant]
     Route: 065
  7. SERTRALINE [Concomitant]
     Route: 065
  8. METFORMIN [Concomitant]
     Route: 065
  9. BENERVA [Concomitant]
     Route: 065
  10. ACETYLSALICYLIC ACID [Concomitant]
  11. CALCIUM [Concomitant]
     Route: 065
  12. RIVOTRIL [Concomitant]
     Route: 065
  13. TOFRANIL [Concomitant]

REACTIONS (22)
  - Hepatitis C [Not Recovered/Not Resolved]
  - Lipoma [Recovered/Resolved]
  - Pain in extremity [Recovered/Resolved]
  - Headache [Recovered/Resolved]
  - Dizziness [Recovered/Resolved]
  - Renal pain [Recovered/Resolved]
  - Vasculitis [Recovering/Resolving]
  - Urinary tract infection [Recovered/Resolved]
  - Visual impairment [Recovered/Resolved]
  - Impaired healing [Recovering/Resolving]
  - Weight increased [Recovered/Resolved]
  - Renal cyst [Unknown]
  - Cardiac disorder [Recovered/Resolved]
  - Body height decreased [Recovered/Resolved]
  - Diabetes mellitus [Not Recovered/Not Resolved]
  - Weight decreased [Not Recovered/Not Resolved]
  - Platelet count decreased [Not Recovered/Not Resolved]
  - Fatigue [Not Recovered/Not Resolved]
  - Erythema [Not Recovered/Not Resolved]
  - Pruritus [Not Recovered/Not Resolved]
  - Red blood cell abnormality [Not Recovered/Not Resolved]
  - Pain in extremity [Recovered/Resolved]
